FAERS Safety Report 24839509 (Version 2)
Quarter: 2025Q1

REPORT INFORMATION
  Report Type: Report from Study
  Country: US (occurrence: US)
  Receive Date: 20250114
  Receipt Date: 20250124
  Transmission Date: 20250409
  Serious: No
  Sender: Unknown Manufacturer
  Company Number: US-MIRUM PHARMACEUTICALS, INC.-US-MIR-24-01090

PATIENT

DRUGS (1)
  1. LIVMARLI [Suspect]
     Active Substance: MARALIXIBAT CHLORIDE
     Indication: Liver disorder
     Dosage: 0.5 MILLILITER, QD (19 MG)
     Route: 048
     Dates: start: 20241126, end: 20241218

REACTIONS (4)
  - Jaundice [Unknown]
  - Ocular icterus [Recovering/Resolving]
  - Blood bilirubin increased [Unknown]
  - Off label use [Unknown]

NARRATIVE: CASE EVENT DATE: 20240101
